FAERS Safety Report 7206116-9 (Version None)
Quarter: 2011Q1

REPORT INFORMATION
  Report Type: 
  Country: None (occurrence: None)
  Receive Date: 20110103
  Receipt Date: 20101224
  Transmission Date: 20110831
  Serious: Yes (Other)
  Sender: FDA-Public Use
  Company Number: JP-ASTELLAS-2010JP007661

PATIENT
  Age: 63 Year
  Sex: Male

DRUGS (1)
  1. TACROLIMUS [Suspect]
     Indication: LICHEN PLANUS
     Route: 061

REACTIONS (1)
  - LIP NEOPLASM MALIGNANT STAGE UNSPECIFIED [None]
